FAERS Safety Report 6215479-2 (Version None)
Quarter: 2009Q2

REPORT INFORMATION
  Report Type: 
  Country: None (occurrence: None)
  Receive Date: 20090603
  Receipt Date: 20090526
  Transmission Date: 20091009
  Serious: Yes (Death, Hospitalization)
  Sender: FDA-Public Use
  Company Number: GXKR2009DE06264

PATIENT
  Age: 78 Year
  Sex: Male
  Weight: 58 kg

DRUGS (13)
  1. CEFTRIAXONE [Suspect]
     Indication: PNEUMONIA
     Dosage: INTRAVENOUS
     Route: 042
     Dates: start: 20080718, end: 20080722
  2. PANTOPRAZOLE (NGX) (PANTOPRAZOLE) UNKNOWN [Suspect]
     Indication: PROPHYLAXIS AGAINST GASTROINTESTINAL ULCER
     Dosage: 40 MG, QD, ORAL
     Route: 048
     Dates: start: 20080712, end: 20080726
  3. AVELOX [Suspect]
     Indication: PNEUMONIA
     Dosage: 400 MG, QD, ORAL
     Route: 048
     Dates: start: 20080701, end: 20080710
  4. CIPROFLAXACIN [Suspect]
     Indication: EPIDIDYMITIS
     Dosage: 250 MG, QD, ORAL
     Route: 048
     Dates: start: 20080612, end: 20080710
  5. ACETYLSALICYLIC ACID SRT [Concomitant]
  6. DIGITOXIN INJ [Concomitant]
  7. ENALAGAMMA (ENALAPRIL MALEATE) [Concomitant]
  8. FUROSEMIDE [Concomitant]
  9. GLEEVEC [Concomitant]
  10. NOVAMINSULFON ^BRAUN^ (METAMIZOLE SODIUM) [Concomitant]
  11. NOVONORM (REPAGLINIDE) [Concomitant]
  12. SYMBICORT [Concomitant]
  13. TORSEMIDE [Concomitant]

REACTIONS (1)
  - PSEUDOMEMBRANOUS COLITIS [None]
